FAERS Safety Report 4688099-9 (Version None)
Quarter: 2005Q2

REPORT INFORMATION
  Report Type: 
  Country: None (occurrence: None)
  Receive Date: 20050609
  Receipt Date: 20050525
  Transmission Date: 20051028
  Serious: Yes (Death, Hospitalization)
  Sender: FDA-Public Use
  Company Number: 2005-01092

PATIENT
  Age: 55 Year
  Sex: Female
  Weight: 77.7 kg

DRUGS (7)
  1. VELCADE [Suspect]
     Indication: MULTIPLE MYELOMA
     Dosage: 2.50 MG, 2/WEEK, INTRAVENOUS
     Route: 042
     Dates: start: 20050405, end: 20050405
  2. SCIO-469 () [Suspect]
     Indication: MULTIPLE MYELOMA
     Dosage: 60.00 MG, TID, ORAL
     Route: 048
     Dates: start: 20050316, end: 20050422
  3. ACETAMINOPHEN [Concomitant]
  4. DORCOL (GUAIFENESIN, PHENYLPROPANOLAMINE HYDROCHLORIDE, DEXTROMETHORPH [Concomitant]
  5. AMITRIPTYLINE HCL [Concomitant]
  6. PAXIL [Concomitant]
  7. VANCOMYCIN [Concomitant]

REACTIONS (20)
  - ALPHA 1 GLOBULIN INCREASED [None]
  - BLOOD ALBUMIN DECREASED [None]
  - BLOOD PH DECREASED [None]
  - BLOOD SODIUM DECREASED [None]
  - BRAIN NATRIURETIC PEPTIDE INCREASED [None]
  - DYSPNOEA [None]
  - ELECTROPHORESIS ABNORMAL [None]
  - HAEMATOCRIT DECREASED [None]
  - HAEMOGLOBIN DECREASED [None]
  - IMMUNOGLOBULINS INCREASED [None]
  - LEUKAEMIA PLASMACYTIC [None]
  - LUNG INFILTRATION [None]
  - PCO2 DECREASED [None]
  - PNEUMONIA [None]
  - PNEUMONITIS [None]
  - PO2 DECREASED [None]
  - PROTEIN TOTAL INCREASED [None]
  - RESPIRATORY DISTRESS [None]
  - STAPHYLOCOCCAL BACTERAEMIA [None]
  - STAPHYLOCOCCAL INFECTION [None]
